FAERS Safety Report 16237249 (Version 1)
Quarter: 2019Q2

REPORT INFORMATION
  Report Type: Spontaneous
  Country: ES (occurrence: ES)
  Receive Date: 20190425
  Receipt Date: 20190425
  Transmission Date: 20190711
  Serious: Yes (Other)
  Sender: FDA-Public Use
  Company Number: ES-SUN PHARMACEUTICAL INDUSTRIES LTD-2019RR-206257

PATIENT
  Age: 48 Year
  Sex: Female

DRUGS (8)
  1. IRINOTECAN [Suspect]
     Active Substance: IRINOTECAN
     Indication: DISEASE PROGRESSION
     Dosage: FOLFIRI
     Route: 065
  2. LEUCOVORIN. [Suspect]
     Active Substance: LEUCOVORIN
     Indication: COLON CANCER METASTATIC
     Dosage: MFOLFOX6
     Route: 065
     Dates: start: 201309
  3. FLUOROURACIL. [Suspect]
     Active Substance: FLUOROURACIL
     Dosage: FOLFIRI
  4. OXALIPLATIN. [Suspect]
     Active Substance: OXALIPLATIN
     Indication: COLON CANCER METASTATIC
     Dosage: MFOLFOX6
     Route: 065
     Dates: start: 201309
  5. FLUOROURACIL. [Suspect]
     Active Substance: FLUOROURACIL
     Indication: COLON CANCER METASTATIC
     Dosage: MFOLFOX6
     Route: 065
     Dates: start: 201309
  6. LEUCOVORIN. [Suspect]
     Active Substance: LEUCOVORIN
     Dosage: FOLFIRI
  7. AFLIBERCEPT [Suspect]
     Active Substance: AFLIBERCEPT
     Indication: DISEASE PROGRESSION
     Route: 065
  8. BEVACIZUMAB. [Suspect]
     Active Substance: BEVACIZUMAB
     Indication: COLON CANCER METASTATIC
     Dosage: UNK
     Route: 065
     Dates: start: 201309

REACTIONS (3)
  - Therapeutic product effect incomplete [Unknown]
  - Disease progression [Unknown]
  - Neuropathy peripheral [Unknown]
